FAERS Safety Report 4562824-X (Version None)
Quarter: 2005Q1

REPORT INFORMATION
  Report Type: 
  Country: None (occurrence: None)
  Receive Date: 20050127
  Receipt Date: 20050122
  Transmission Date: 20050727
  Serious: Yes (Other)
  Sender: FDA-Public Use
  Company Number: 12815445

PATIENT
  Age: 37 Year
  Sex: Male

DRUGS (4)
  1. ZIDOVUDINE [Suspect]
     Route: 065
  2. DIDANOSINE [Suspect]
     Route: 065
  3. VIREAD [Suspect]
     Route: 065
  4. DELAVIRDINE [Suspect]
     Route: 065

REACTIONS (3)
  - FANCONI SYNDROME ACQUIRED [None]
  - JOINT SWELLING [None]
  - STRESS FRACTURE [None]
